FAERS Safety Report 8477676-5 (Version None)
Quarter: 2012Q2

REPORT INFORMATION
  Report Type: 
  Country: None (occurrence: None)
  Receive Date: 20120629
  Receipt Date: 20120625
  Transmission Date: 20120825
  Serious: Yes (Hospitalization)
  Sender: FDA-Public Use
  Company Number: US-B.I. PHARMACEUTICALS,INC./RIDGEFIELD-2012-BP-14409BP

PATIENT
  Sex: Female
  Weight: 126 kg

DRUGS (14)
  1. LANTUS [Concomitant]
     Indication: BLOOD GLUCOSE INCREASED
     Dosage: 40 U
     Route: 058
     Dates: start: 20000101
  2. SPIRIVA [Suspect]
     Indication: DYSPNOEA
     Dosage: 18 MCG
     Route: 055
     Dates: start: 20010101
  3. SYNTHROID [Concomitant]
     Indication: THYROID DISORDER
     Route: 048
  4. METFORMIN HCL [Concomitant]
     Indication: BLOOD GLUCOSE ABNORMAL
     Dosage: 1000 MG
     Route: 048
     Dates: start: 19990101
  5. BUSPIRONE HCL [Concomitant]
     Indication: NERVOUSNESS
     Dosage: 30 MG
     Route: 048
     Dates: start: 20050101
  6. ALPRAZOLAM [Concomitant]
     Indication: ANXIETY
     Dosage: 6 MG
     Route: 048
     Dates: start: 20050101
  7. SIMVASTATIN [Concomitant]
     Indication: BLOOD CHOLESTEROL
     Route: 048
  8. AMLODIPINE [Concomitant]
     Indication: CARDIAC DISORDER
     Dosage: 5 MG
     Route: 048
     Dates: start: 20000101
  9. LASIX [Concomitant]
     Indication: CARDIAC FAILURE CONGESTIVE
     Dosage: 80 MG
     Route: 048
     Dates: start: 20000101
  10. ASPIRIN [Concomitant]
     Indication: ISCHAEMIC HEART DISEASE PROPHYLAXIS
     Dosage: 325 MG
     Route: 048
  11. THEOPHYLLINE [Concomitant]
     Indication: DYSPNOEA
     Dosage: 600 MG
     Route: 048
     Dates: start: 19990101
  12. GLUOPHAGE [Concomitant]
     Indication: BLOOD GLUCOSE ABNORMAL
     Dosage: 1500 MG
     Route: 048
     Dates: start: 19990101
  13. CYCLOBENZAPRINE [Concomitant]
     Indication: MUSCLE SPASMS
     Dosage: 10 MG
     Route: 048
  14. OMEPRAZOLE [Concomitant]
     Indication: ULCER
     Dosage: 40 MG
     Route: 048

REACTIONS (4)
  - DYSPNOEA [None]
  - HERPES VIRUS INFECTION [None]
  - CYST [None]
  - BREAST CYST [None]
